FAERS Safety Report 9626108 (Version 2)
Quarter: 2014Q1

REPORT INFORMATION
  Report Type: Spontaneous
  Country: US (occurrence: US)
  Receive Date: 20131016
  Receipt Date: 20140116
  Transmission Date: 20141002
  Serious: No
  Sender: FDA-Public Use
  Company Number: US-MYLANLABS-2013S1021378

PATIENT
  Age: 71 Year
  Sex: Male
  Weight: 90.72 kg

DRUGS (3)
  1. VALSARTAN/HYDROCHLOORTHIAZIDE [Suspect]
     Indication: HYPERTENSION
     Dosage: 160MG/25MG
     Dates: start: 20130705, end: 20130718
  2. LIPITOR [Concomitant]
     Dates: start: 2011
  3. TARKA [Concomitant]
     Dosage: 4MG/240MG
     Dates: start: 20130705

REACTIONS (6)
  - Nausea [Recovered/Resolved]
  - Dizziness [Recovered/Resolved]
  - Oedema peripheral [Recovered/Resolved]
  - Fatigue [Recovered/Resolved]
  - Asthenia [Recovered/Resolved]
  - Pollakiuria [Recovered/Resolved]
